FAERS Safety Report 17012717 (Version 1)
Quarter: 2019Q4

REPORT INFORMATION
  Report Type: Spontaneous
  Country: US (occurrence: US)
  Receive Date: 20191109
  Receipt Date: 20191109
  Transmission Date: 20200122
  Serious: No
  Sender: FDA-Public Use
  Company Number: US-DRREDDYS-USA/USA/19/0115730

PATIENT
  Sex: Female
  Weight: 54 kg

DRUGS (2)
  1. VITAMIN D [Concomitant]
     Active Substance: VITAMIN D NOS
     Indication: PRODUCT USED FOR UNKNOWN INDICATION
  2. NICOTINE. [Suspect]
     Active Substance: NICOTINE
     Indication: TOBACCO USER
     Route: 062
     Dates: start: 20191024, end: 20191024

REACTIONS (2)
  - Application site rash [Not Recovered/Not Resolved]
  - Urticaria [Not Recovered/Not Resolved]
